FAERS Safety Report 4284407-1 (Version None)
Quarter: 2004Q1

REPORT INFORMATION
  Report Type: 
  Country: None (occurrence: None)
  Receive Date: 20040130
  Receipt Date: 20040114
  Transmission Date: 20041129
  Serious: Yes (Hospitalization)
  Sender: FDA-Public Use
  Company Number: USA040156226

PATIENT
  Age: 16 Year
  Sex: Female
  Weight: 55 kg

DRUGS (2)
  1. STRATTERA [Suspect]
     Indication: ATTENTION DEFICIT/HYPERACTIVITY DISORDER
     Dosage: 160 MG/DAY
  2. ADDERALL [Concomitant]

REACTIONS (6)
  - ACCIDENTAL OVERDOSE [None]
  - DYSTONIA [None]
  - HALLUCINATION [None]
  - MEDICATION ERROR [None]
  - MUSCLE TWITCHING [None]
  - MYOCLONUS [None]
